FAERS Safety Report 6793032-X (Version None)
Quarter: 2010Q2

REPORT INFORMATION
  Report Type: 
  Country: None (occurrence: None)
  Receive Date: 20100624
  Receipt Date: 20081112
  Transmission Date: 20101027
  Serious: No
  Sender: FDA-Public Use
  Company Number: US-PFIZER INC-2008096315

PATIENT
  Sex: Male

DRUGS (2)
  1. GEODON [Suspect]
  2. RISPERDAL [Concomitant]

REACTIONS (1)
  - INCREASED APPETITE [None]
